FAERS Safety Report 25836858 (Version 1)
Quarter: 2025Q3

REPORT INFORMATION
  Report Type: Spontaneous
  Country: EU (occurrence: EU)
  Receive Date: 20250923
  Receipt Date: 20250923
  Transmission Date: 20251020
  Serious: Yes (Other)
  Sender: PFIZER
  Company Number: EU-Merck Healthcare KGaA-2025044740

PATIENT
  Age: 36 Year
  Sex: Female

DRUGS (5)
  1. ENCORAFENIB [Suspect]
     Active Substance: ENCORAFENIB
     Indication: Colorectal cancer
     Route: 065
  2. ERBITUX [Suspect]
     Active Substance: CETUXIMAB
     Indication: Colorectal cancer
     Route: 065
  3. FLUOROURACIL [Concomitant]
     Active Substance: FLUOROURACIL
     Indication: Colorectal cancer
     Route: 065
  4. LEUCOVORIN [Concomitant]
     Active Substance: LEUCOVORIN\LEUCOVORIN CALCIUM
     Indication: Colorectal cancer
     Route: 065
  5. OXALIPLATIN [Concomitant]
     Active Substance: OXALIPLATIN
     Indication: Colorectal cancer
     Route: 065

REACTIONS (4)
  - Oropharyngeal pain [Not Recovered/Not Resolved]
  - Stevens-Johnson syndrome [Not Recovered/Not Resolved]
  - Off label use [Unknown]
  - Product use issue [Unknown]
